FAERS Safety Report 19932941 (Version 1)
Quarter: 2021Q4

REPORT INFORMATION
  Report Type: Spontaneous
  Country: US (occurrence: US)
  Receive Date: 20211006
  Receipt Date: 20211006
  Transmission Date: 20220304
  Serious: No
  Sender: FDA-Public Use
  Company Number: None

PATIENT
  Age: 67 Year
  Sex: Male

DRUGS (1)
  1. ABIRATERONE [Suspect]
     Active Substance: ABIRATERONE
     Route: 048
     Dates: start: 202108

REACTIONS (3)
  - Urinary tract infection [None]
  - Joint swelling [None]
  - Therapy interrupted [None]

NARRATIVE: CASE EVENT DATE: 20210927
